FAERS Safety Report 9409523 (Version 1)
Quarter: 2013Q3

REPORT INFORMATION
  Report Type: Spontaneous
  Country: US (occurrence: US)
  Receive Date: 20130719
  Receipt Date: 20130719
  Transmission Date: 20140515
  Serious: Yes (Hospitalization)
  Sender: FDA-Public Use
  Company Number: US-BAYER-2013-087023

PATIENT
  Age: 16 Year
  Sex: Female
  Weight: 100 kg

DRUGS (12)
  1. YASMIN [Suspect]
     Indication: POLYCYSTIC OVARIES
  2. AUGMENTIN [Concomitant]
     Dosage: 875-125 MG
     Dates: start: 20060727
  3. ZIDOVUDINE [Concomitant]
     Dosage: 300 MG, UNK
     Dates: start: 20060806
  4. EPIVIR [Concomitant]
     Dosage: 150 MG, UNK
     Dates: start: 20060806
  5. CRIXIVAN [Concomitant]
     Dosage: 400 MG, UNK
     Dates: start: 20060806
  6. AMOXICILLIN [Concomitant]
     Dosage: 875 MG, UNK
     Dates: start: 20060818
  7. CLARINEX [DESLORATADINE] [Concomitant]
     Dosage: 10 MG, UNK
     Route: 048
  8. ALBUTEROL [Concomitant]
     Dosage: 2 PUFF(S), UNK
  9. CARBATROL [Concomitant]
     Dosage: 1200 MG, UNK
     Route: 048
  10. ABILIFY [Concomitant]
     Dosage: 15 MG, UNK
     Route: 048
  11. LEXAPRO [Concomitant]
     Indication: ANXIETY
     Dosage: 15 MG, UNK
     Route: 048
  12. LEXAPRO [Concomitant]
     Indication: DEPRESSION

REACTIONS (1)
  - Pulmonary embolism [Recovering/Resolving]
